FAERS Safety Report 16112319 (Version 1)
Quarter: 2019Q1

REPORT INFORMATION
  Report Type: Spontaneous
  Country: US (occurrence: US)
  Receive Date: 20190220
  Receipt Date: 20190220
  Transmission Date: 20190418
  Serious: No
  Sender: FDA-Public Use
  Company Number: None

PATIENT
  Age: 69 Year
  Sex: Male
  Weight: 90 kg

DRUGS (1)
  1. GEMCITABINE [Suspect]
     Active Substance: GEMCITABINE\GEMCITABINE HYDROCHLORIDE
     Indication: PAIN
     Dosage: ?          OTHER ROUTE:OTHER?
     Dates: start: 20180131, end: 20190207

REACTIONS (4)
  - Micturition urgency [None]
  - Incontinence [None]
  - Penile pain [None]
  - Suprapubic pain [None]

NARRATIVE: CASE EVENT DATE: 20190207
